FAERS Safety Report 8876605 (Version 2)
Quarter: 2013Q2

REPORT INFORMATION
  Report Type: Spontaneous
  Country: US (occurrence: None)
  Receive Date: 20120426
  Receipt Date: 20120703
  Transmission Date: 20140414
  Serious: Yes (Other)
  Sender: FDA-Public Use
  Company Number: PHEH2012US003900

PATIENT
  Age: 52 Year
  Sex: Female
  Weight: 81.6 kg

DRUGS (4)
  1. GILENYA [Suspect]
     Indication: MULTIPLE SCLEROSIS
     Route: 048
     Dates: start: 20110426, end: 20120327
  2. FEXMID (CYCLOBENZAPRINE) [Concomitant]
  3. SYNTHROID (LEVOTHYROXINE SODIUM) [Concomitant]
  4. LEXAPRO (ESCITALOPRAM OXALATE) [Concomitant]

REACTIONS (6)
  - Feeling abnormal [None]
  - Pain in extremity [None]
  - Migraine [None]
  - Neck pain [None]
  - Headache [None]
  - Muscle spasms [None]
